FAERS Safety Report 4705520-8 (Version None)
Quarter: 2005Q2

REPORT INFORMATION
  Report Type: 
  Country: None (occurrence: None)
  Receive Date: 20050629
  Receipt Date: 20050118
  Transmission Date: 20051028
  Serious: Yes (Hospitalization)
  Sender: FDA-Public Use
  Company Number: 200510136EU

PATIENT
  Age: 47 Year
  Sex: Female
  Weight: 69.2 kg

DRUGS (3)
  1. FLUOROURACIL [Suspect]
     Indication: BREAST CANCER
     Dosage: 1050 MG Q3W IV
     Route: 042
     Dates: start: 20040922, end: 20050105
  2. EPIRUBICIN [Suspect]
     Indication: BREAST CANCER
     Dosage: 158 MG Q3W IV
     Route: 042
     Dates: start: 20040922, end: 20050105
  3. CYCLOPHOSPHAMIDE [Suspect]
     Indication: BREAST CANCER
     Dosage: 2100 MG Q3W IV
     Route: 042
     Dates: start: 20040922, end: 20050105

REACTIONS (3)
  - DEEP VEIN THROMBOSIS [None]
  - NEUTROPENIC INFECTION [None]
  - OEDEMA PERIPHERAL [None]
